FAERS Safety Report 8354456-2 (Version None)
Quarter: 2012Q2

REPORT INFORMATION
  Report Type: 
  Country: None (occurrence: None)
  Receive Date: 20120511
  Receipt Date: 20120502
  Transmission Date: 20120825
  Serious: Yes (Hospitalization)
  Sender: FDA-Public Use
  Company Number: US-JNJFOC-20120111115

PATIENT
  Sex: Female
  Weight: 51.6 kg

DRUGS (5)
  1. INFLIXIMAB, RECOMBINANT [Suspect]
     Indication: CROHN'S DISEASE
     Route: 042
     Dates: start: 20100831
  2. NEXIUM [Concomitant]
  3. MESALAMINE [Concomitant]
     Indication: CROHN'S DISEASE
     Route: 048
  4. XOPENEX [Concomitant]
  5. HUMIRA [Concomitant]
     Indication: CROHN'S DISEASE
     Dates: start: 20101128

REACTIONS (1)
  - CROHN'S DISEASE [None]
